FAERS Safety Report 15173183 (Version 7)
Quarter: 2018Q4

REPORT INFORMATION
  Report Type: Spontaneous
  Country: US (occurrence: US)
  Receive Date: 20180720
  Receipt Date: 20181101
  Transmission Date: 20190204
  Serious: No
  Sender: FDA-Public Use
  Company Number: US-ALKERMES INC.-ALK-2018-003713

PATIENT
  Age: 27 Year
  Sex: Male
  Weight: 81.27 kg

DRUGS (6)
  1. ARISTADA [Suspect]
     Active Substance: ARIPIPRAZOLE LAUROXIL
     Indication: SCHIZOPHRENIA
     Dosage: 882 MG, Q6WK
     Route: 030
     Dates: start: 201802
  2. MIRTAZAPINE. [Concomitant]
     Active Substance: MIRTAZAPINE
     Indication: DEPRESSION
     Dosage: 30 MG, UNK
     Route: 065
  3. ARISTADA [Suspect]
     Active Substance: ARIPIPRAZOLE LAUROXIL
     Dosage: 882 UNK, UNK
     Route: 030
     Dates: start: 20180206
  4. ABILIFY [Concomitant]
     Active Substance: ARIPIPRAZOLE
     Indication: SCHIZOPHRENIA
     Dosage: UNK
     Dates: start: 2018, end: 2018
  5. ARISTADA [Suspect]
     Active Substance: ARIPIPRAZOLE LAUROXIL
     Dosage: 882 MG, Q6WK
     Route: 030
     Dates: start: 20171217, end: 2018
  6. LORAZEPAM. [Concomitant]
     Active Substance: LORAZEPAM
     Indication: ANXIETY
     Dosage: 1 MG, AS NEEDED
     Route: 065

REACTIONS (6)
  - Weight increased [Recovered/Resolved]
  - Abdominal pain upper [Recovered/Resolved]
  - Gastric pH decreased [Recovered/Resolved]
  - Hallucination, auditory [Recovered/Resolved]
  - Gastrointestinal disorder [Recovered/Resolved]
  - Nausea [Recovered/Resolved]

NARRATIVE: CASE EVENT DATE: 201712
